FAERS Safety Report 17306906 (Version 1)
Quarter: 2020Q1

REPORT INFORMATION
  Report Type: Spontaneous
  Country: GB (occurrence: GB)
  Receive Date: 20200123
  Receipt Date: 20200123
  Transmission Date: 20200409
  Serious: Yes (Other)
  Sender: FDA-Public Use
  Company Number: GB-MYLANLABS-2020M1006612

PATIENT
  Age: 34 Year
  Sex: Male

DRUGS (1)
  1. PENICILLAMINE 250 MG FILM-COATED TABLETS [Suspect]
     Active Substance: PENICILLAMINE
     Indication: HEPATO-LENTICULAR DEGENERATION
     Dosage: 250 MILLIGRAM, QD

REACTIONS (3)
  - Incorrect dose administered [Unknown]
  - Mental disorder [Unknown]
  - Agitation [Unknown]
